FAERS Safety Report 6972090-3 (Version None)
Quarter: 2010Q3

REPORT INFORMATION
  Report Type: 
  Country: None (occurrence: None)
  Receive Date: 20100909
  Receipt Date: 20100831
  Transmission Date: 20110219
  Serious: No
  Sender: FDA-Public Use
  Company Number: US-BIOGENIDEC-2010BI026537

PATIENT
  Age: 21 Year
  Sex: Female

DRUGS (1)
  1. TYSABRI [Suspect]
     Indication: MULTIPLE SCLEROSIS
     Route: 042
     Dates: start: 20091105

REACTIONS (9)
  - ASTHENIA [None]
  - DIZZINESS POSTURAL [None]
  - HEADACHE [None]
  - HYPOAESTHESIA [None]
  - INCORRECT DRUG ADMINISTRATION RATE [None]
  - INSOMNIA [None]
  - MIGRAINE [None]
  - TREMOR [None]
  - URTICARIA [None]
